FAERS Safety Report 9547698 (Version 1)
Quarter: 2013Q3

REPORT INFORMATION
  Report Type: Spontaneous
  Country: US (occurrence: None)
  Receive Date: 20130701
  Receipt Date: 20130701
  Transmission Date: 20140515
  Serious: No
  Sender: FDA-Public Use
  Company Number: 291118

PATIENT
  Age: 21 Year
  Sex: Female

DRUGS (2)
  1. PROPOFOL [Suspect]
     Indication: SEDATION
     Route: 042
     Dates: start: 20090603, end: 20090603
  2. LIDOCAINE [Suspect]
     Route: 042
     Dates: start: 20090603, end: 20090603

REACTIONS (3)
  - Pyrexia [None]
  - Chills [None]
  - Headache [None]
